FAERS Safety Report 25128967 (Version 1)
Quarter: 2025Q1

REPORT INFORMATION
  Report Type: Spontaneous
  Country: US (occurrence: None)
  Receive Date: 20250327
  Receipt Date: 20250327
  Transmission Date: 20250409
  Serious: Yes (Hospitalization)
  Sender: FDA-CTU
  Company Number: None

PATIENT
  Age: 78 Year
  Sex: Male
  Weight: 81 kg

DRUGS (1)
  1. LEUPROLIDE ACETATE [Suspect]
     Active Substance: LEUPROLIDE ACETATE
     Dates: end: 20240501

REACTIONS (4)
  - Cardiac failure chronic [None]
  - Sinus arrhythmia [None]
  - Atrioventricular block first degree [None]
  - Blood pressure increased [None]

NARRATIVE: CASE EVENT DATE: 20241130
